FAERS Safety Report 20405469 (Version 1)
Quarter: 2022Q1

REPORT INFORMATION
  Report Type: Spontaneous
  Country: US (occurrence: None)
  Receive Date: 20220129
  Receipt Date: 20220129
  Transmission Date: 20220423
  Serious: Yes (Disabling)
  Sender: FDA-Public Use
  Company Number: None

PATIENT
  Age: 72 Year
  Sex: Female
  Weight: 72 kg

DRUGS (1)
  1. ANASTROZOLE [Suspect]
     Active Substance: ANASTROZOLE
     Indication: Breast cancer recurrent
     Dosage: OTHER QUANTITY : 1 TABLET(S);?
     Route: 048
     Dates: start: 20210820, end: 20211004

REACTIONS (4)
  - Genital burning sensation [None]
  - Genital atrophy [None]
  - Oestrogen deficiency [None]
  - VIIIth nerve injury [None]

NARRATIVE: CASE EVENT DATE: 20210920
